FAERS Safety Report 12457266 (Version 1)
Quarter: 2016Q2

REPORT INFORMATION
  Report Type: Spontaneous
  Country: US (occurrence: US)
  Receive Date: 20160610
  Receipt Date: 20160610
  Transmission Date: 20160815
  Serious: Yes (Other)
  Sender: FDA-Public Use
  Company Number: US-BAYER-2016-108690

PATIENT
  Age: 10 Year
  Sex: Male
  Weight: 37.5 kg

DRUGS (12)
  1. METOPROLOL. [Concomitant]
     Active Substance: METOPROLOL
     Dosage: UNK
     Dates: start: 20160129
  2. VORICONAZOLE. [Concomitant]
     Active Substance: VORICONAZOLE
     Dosage: UNK
     Dates: start: 201510, end: 20160421
  3. PREDNISONE. [Concomitant]
     Active Substance: PREDNISONE
     Dosage: UNK
     Dates: start: 201511
  4. CIPRO [Suspect]
     Active Substance: CIPROFLOXACIN HYDROCHLORIDE
     Indication: PROPHYLAXIS
     Dosage: 500 MG Q18H
     Route: 065
     Dates: start: 20160203, end: 20160422
  5. LOPERAMIDE [Suspect]
     Active Substance: LOPERAMIDE
     Indication: DIARRHOEA
     Dosage: 1 MG, BID
     Route: 065
     Dates: start: 20160325, end: 20160422
  6. COLECALCIFEROL [Concomitant]
     Active Substance: CHOLECALCIFEROL
     Dosage: UNK
     Dates: start: 20160331
  7. METOLAZONE. [Concomitant]
     Active Substance: METOLAZONE
     Dosage: UNK
     Dates: start: 20160327
  8. SEPTRA [Concomitant]
     Active Substance: SULFAMETHOXAZOLE\TRIMETHOPRIM
     Dosage: UNK
     Dates: start: 201511, end: 20160422
  9. AMLODIPINE [Concomitant]
     Active Substance: AMLODIPINE BESYLATE
     Dosage: UNK
     Dates: start: 20160107
  10. PANTOPRAZOLE [Concomitant]
     Active Substance: PANTOPRAZOLE SODIUM
     Dosage: UNK
     Dates: start: 20160203
  11. PENICILLIN V POTASSIUM. [Concomitant]
     Active Substance: PENICILLIN V POTASSIUM
     Dosage: UNK
     Dates: start: 20160203
  12. ECULIZUMAB [Concomitant]
     Active Substance: ECULIZUMAB
     Dosage: UNK
     Dates: start: 20160203

REACTIONS (5)
  - Diarrhoea [Recovering/Resolving]
  - Hepatomegaly [None]
  - Abdominal pain [Recovering/Resolving]
  - Adenovirus infection [None]
  - Off label use [None]

NARRATIVE: CASE EVENT DATE: 20160422
